FAERS Safety Report 12777814 (Version 2)
Quarter: 2016Q4

REPORT INFORMATION
  Report Type: Spontaneous
  Country: US (occurrence: US)
  Receive Date: 20160924
  Receipt Date: 20161114
  Transmission Date: 20170207
  Serious: No
  Sender: FDA-Public Use
  Company Number: US-JAZZ-2016-US-010672

PATIENT
  Age: 37 Year
  Sex: Female
  Weight: 58.96 kg

DRUGS (11)
  1. ASMANEX [Concomitant]
     Active Substance: MOMETASONE FUROATE
  2. NUVIGIL [Concomitant]
     Active Substance: ARMODAFINIL
  3. GILDESS FE [Concomitant]
     Active Substance: ETHINYL ESTRADIOL\NORETHINDRONE
  4. XYREM [Suspect]
     Active Substance: SODIUM OXYBATE
     Dosage: 4 G, BID
     Route: 048
     Dates: start: 2016, end: 2016
  5. XYREM [Suspect]
     Active Substance: SODIUM OXYBATE
     Indication: NARCOLEPSY
     Dosage: 2.25 G, BID
     Route: 048
     Dates: start: 20160603, end: 2016
  6. TRAMADOL. [Concomitant]
     Active Substance: TRAMADOL
     Indication: HEADACHE
  7. PROAIR HFA [Concomitant]
     Active Substance: ALBUTEROL SULFATE
  8. XYREM [Suspect]
     Active Substance: SODIUM OXYBATE
     Dosage: UNKNOWN DOSE
     Route: 048
     Dates: start: 2016
  9. ADDERALL [Concomitant]
     Active Substance: AMPHETAMINE ASPARTATE\AMPHETAMINE SULFATE\DEXTROAMPHETAMINE SACCHARATE\DEXTROAMPHETAMINE SULFATE
     Indication: NARCOLEPSY
  10. KLONOPIN [Concomitant]
     Active Substance: CLONAZEPAM
  11. TRAMADOL HCL [Concomitant]
     Active Substance: TRAMADOL HYDROCHLORIDE

REACTIONS (2)
  - Anxiety [Unknown]
  - Feeling hot [Not Recovered/Not Resolved]

NARRATIVE: CASE EVENT DATE: 201606
